FAERS Safety Report 10231074 (Version 1)
Quarter: 2014Q2

REPORT INFORMATION
  Report Type: Spontaneous
  Country: GB (occurrence: GB)
  Receive Date: 20140611
  Receipt Date: 20140611
  Transmission Date: 20141212
  Serious: Yes (Other)
  Sender: FDA-Public Use
  Company Number: GB-TEVA-486785ISR

PATIENT
  Age: 98 Year
  Sex: Male

DRUGS (5)
  1. TRIMETHOPRIM [Suspect]
     Indication: URINARY TRACT INFECTION
     Dosage: 400 MILLIGRAM DAILY; PRESCRIBED FOR 7 DAYS
     Route: 048
     Dates: start: 20140516, end: 20140517
  2. FLUCLOXACILLIN [Concomitant]
     Dates: start: 20140502
  3. LANSOPRAZOLE [Concomitant]
     Dosage: NOT TAKING
  4. PARACETAMOL [Concomitant]
  5. IBUPROFEN [Concomitant]

REACTIONS (2)
  - Thrombocytopenia [Not Recovered/Not Resolved]
  - Confusional state [Unknown]
